FAERS Safety Report 8073147-9 (Version None)
Quarter: 2012Q1

REPORT INFORMATION
  Report Type: 
  Country: None (occurrence: None)
  Receive Date: 20120126
  Receipt Date: 20120116
  Transmission Date: 20120608
  Serious: Yes (Hospitalization)
  Sender: FDA-Public Use
  Company Number: AU-JNJFOC-20120105712

PATIENT
  Sex: Male
  Weight: 80.6 kg

DRUGS (9)
  1. ABIRATERONE ACETATE [Suspect]
     Route: 048
  2. PREDNISONE TAB [Suspect]
     Indication: PROSTATE CANCER METASTATIC
     Route: 048
     Dates: start: 20110513
  3. ZOLADEX [Concomitant]
     Indication: HORMONE THERAPY
     Route: 065
     Dates: start: 20100114
  4. ISOSORBIDE DINITRATE [Concomitant]
     Indication: CARDIOVASCULAR EVENT PROPHYLAXIS
     Route: 065
     Dates: start: 20100101
  5. OXYCODONE HCL [Concomitant]
     Indication: PAIN
     Route: 065
     Dates: start: 20110101
  6. FENTANYL [Concomitant]
     Indication: PAIN
     Route: 065
     Dates: start: 20111129
  7. ASPIRIN [Concomitant]
     Indication: CARDIOVASCULAR EVENT PROPHYLAXIS
     Route: 065
     Dates: start: 20100101
  8. ABIRATERONE ACETATE [Suspect]
     Indication: PROSTATE CANCER METASTATIC
     Route: 048
     Dates: start: 20110513
  9. CITALOPRAM HYDROBROMIDE [Concomitant]
     Indication: DEPRESSION
     Route: 065
     Dates: start: 20020101

REACTIONS (1)
  - PYREXIA [None]
